FAERS Safety Report 8090376 (Version 6)
Quarter: 2012Q4

REPORT INFORMATION
  Report Type: 
  Country: US (occurrence: US)
  Receive Date: 20110815
  Receipt Date: 20120924
  Transmission Date: 20130627
  Serious: Yes (Hospitalization, Other)
  Sender: FDA-Public Use
  Company Number: US-ASTRAZENECA-2011SE47042

PATIENT
  Age: 48 Year
  Sex: Male
  Weight: 108.9 kg

DRUGS (13)
  1. NEXIUM [Suspect]
     Route: 048
  2. LISINOPRIL [Suspect]
     Indication: BLOOD PRESSURE
     Route: 048
  3. SEROQUEL [Suspect]
     Indication: BIPOLAR DISORDER
     Route: 048
  4. SEROQUEL [Suspect]
     Indication: BIPOLAR DISORDER
     Route: 048
  5. SEROQUEL [Suspect]
     Indication: BIPOLAR DISORDER
     Dosage: 4 PILLS OF 300 MG AT NIGHT
     Route: 048
     Dates: start: 2005
  6. MORPHINE [Concomitant]
     Indication: BACK DISORDER
  7. ROXYCODONE [Concomitant]
  8. MEDICATION [Concomitant]
     Indication: NAUSEA
  9. METFORMIN [Concomitant]
  10. GLYBURIDE [Concomitant]
  11. METFORMIN GLIMIPERIDE [Concomitant]
     Indication: DIABETES MELLITUS
  12. ROBAXIN [Concomitant]
     Indication: MUSCLE RELAXANT THERAPY
  13. SIMVASTATIN [Concomitant]

REACTIONS (10)
  - Adverse event [Unknown]
  - Insomnia [Unknown]
  - Nausea [Unknown]
  - Drug dose omission [Unknown]
  - Off label use [Unknown]
  - Drug prescribing error [Unknown]
  - Intervertebral disc protrusion [Unknown]
  - Accident at work [Unknown]
  - Myocardial infarction [Unknown]
  - Diabetes mellitus [Unknown]
